FAERS Safety Report 16941635 (Version 2)
Quarter: 2019Q4

REPORT INFORMATION
  Report Type: Report from Study
  Country: FR (occurrence: FR)
  Receive Date: 20191021
  Receipt Date: 20191203
  Transmission Date: 20200122
  Serious: Yes (Hospitalization, Other)
  Sender: FDA-Public Use
  Company Number: NVSC2019FR009101

PATIENT
  Age: 32 Year
  Sex: Female
  Weight: 54 kg

DRUGS (2)
  1. ADOPORT [Suspect]
     Active Substance: TACROLIMUS
     Indication: RENAL TRANSPLANT
     Dosage: 5 MG
     Route: 048
     Dates: start: 20181016
  2. CERTICAN [Suspect]
     Active Substance: EVEROLIMUS
     Indication: PRODUCT USED FOR UNKNOWN INDICATION
     Dosage: UNK
     Route: 065
     Dates: start: 20190603, end: 20190905

REACTIONS (4)
  - Acute kidney injury [Not Recovered/Not Resolved]
  - Thrombotic microangiopathy [Recovering/Resolving]
  - Diarrhoea [Recovered/Resolved]
  - Renal graft infection [Recovering/Resolving]

NARRATIVE: CASE EVENT DATE: 20190614
